FAERS Safety Report 4907383-4 (Version None)
Quarter: 2006Q1

REPORT INFORMATION
  Report Type: 
  Country: None (occurrence: None)
  Receive Date: 20060208
  Receipt Date: 20060203
  Transmission Date: 20060701
  Serious: Yes (Hospitalization, Other)
  Sender: FDA-Public Use
  Company Number: ITWYE332826JAN06

PATIENT
  Age: 26 Year
  Sex: Male

DRUGS (1)
  1. RAPAMUNE              (SIROLIMUST) [Suspect]
     Indication: PROPHYLAXIS AGAINST TRANSPLANT REJECTION
     Dosage: ORAL
     Route: 048
     Dates: start: 20051210, end: 20060201

REACTIONS (1)
  - KIDNEY TRANSPLANT REJECTION [None]
